FAERS Safety Report 21064461 (Version 2)
Quarter: 2022Q3

REPORT INFORMATION
  Report Type: Spontaneous
  Country: JP (occurrence: JP)
  Receive Date: 20220711
  Receipt Date: 20220727
  Transmission Date: 20221027
  Serious: Yes (Hospitalization, Other)
  Sender: FDA-Public Use
  Company Number: JP-ELI_LILLY_AND_COMPANY-JP202207000650

PATIENT
  Age: 68 Year
  Sex: Male
  Weight: 61 kg

DRUGS (3)
  1. GEMCITABINE HYDROCHLORIDE [Suspect]
     Active Substance: GEMCITABINE HYDROCHLORIDE
     Indication: Squamous cell carcinoma of lung
     Dosage: 1250 MG/M2, DAILY
     Route: 042
     Dates: start: 20220525, end: 20220601
  2. CISPLATIN [Suspect]
     Active Substance: CISPLATIN
     Indication: Squamous cell carcinoma of lung
     Dosage: 75 MG/M2, DAILY
     Route: 042
     Dates: start: 20220525, end: 20220601
  3. PORTRAZZA [Suspect]
     Active Substance: NECITUMUMAB
     Indication: Squamous cell carcinoma of lung
     Dosage: 800 MG, DAILY
     Route: 042
     Dates: start: 20220525, end: 20220601

REACTIONS (5)
  - Atelectasis [Recovering/Resolving]
  - Tumour haemorrhage [Recovering/Resolving]
  - Febrile neutropenia [Unknown]
  - Pneumonia [Unknown]
  - Platelet count decreased [Unknown]

NARRATIVE: CASE EVENT DATE: 20220529
